FAERS Safety Report 8974291 (Version 1)
Quarter: 2012Q4

REPORT INFORMATION
  Report Type: Spontaneous
  Country: US (occurrence: None)
  Receive Date: 20121217
  Receipt Date: 20121217
  Transmission Date: 20130627
  Serious: Yes (Other)
  Sender: FDA-Public Use
  Company Number: None

PATIENT
  Age: 57 Year
  Sex: Male
  Weight: 68.04 kg

DRUGS (1)
  1. LIPITOR [Suspect]
     Indication: CHOLESTEROL HIGH
     Dosage: 1 x day po
     Route: 048
     Dates: start: 20120912, end: 20121020

REACTIONS (3)
  - Myalgia [None]
  - Dysstasia [None]
  - Back pain [None]
